FAERS Safety Report 6400952-4 (Version None)
Quarter: 2009Q4

REPORT INFORMATION
  Report Type: 
  Country: None (occurrence: None)
  Receive Date: 20091015
  Receipt Date: 20091005
  Transmission Date: 20100525
  Serious: Yes (Other)
  Sender: FDA-Public Use
  Company Number: US-RANBAXY-2008RR-15408

PATIENT
  Age: 86 Year
  Sex: Male

DRUGS (26)
  1. ASPIRIN [Suspect]
  2. CLOPIDOGREL [Suspect]
  3. FLUNISOLIDE [Suspect]
  4. ALBUTEROL [Suspect]
  5. IPRATROPIUM [Suspect]
     Dosage: UNK
  6. MOMETASONE FUROATE [Suspect]
     Route: 055
  7. DENEZEPIL [Suspect]
     Dosage: 10 MG, UNK
  8. CYPROHEPTADINE [Suspect]
     Dosage: 4 MG, QD
  9. FAMOTIDINE [Suspect]
     Dosage: 40 MG, QD
  10. FUROSEMIDE [Suspect]
     Dosage: 20 MG, 3/WEEK
  11. ISOSORBIDE MONONITRATE [Suspect]
     Dosage: 15 MG, QD
  12. LISINOPRIL [Suspect]
     Dosage: 2.5 MG, QD
  13. MAGNESIUM GLUCONATE [Suspect]
     Dosage: 500 MG, QD
  14. METOCLOPRAMIDE-BP [Suspect]
     Dosage: 10 MG, QID
  15. METOPROLOL [Suspect]
     Dosage: 75 MG, QD
  16. SERTRALINE HCL [Suspect]
     Dosage: 75 MG, QD
  17. NITROGLYCERIN [Suspect]
     Dosage: 0.4 MG, PRN
     Route: 060
  18. SIMVASTATIN [Suspect]
     Dosage: 40 MG, QD
  19. MODAFINIL [Suspect]
     Indication: APATHY
     Dosage: 200 MG, UNK
  20. MODAFINIL [Suspect]
     Indication: FATIGUE
  21. LEVETIRACETAM [Suspect]
     Indication: CONVULSION
     Dosage: 1000 MG, BID
  22. LEVETIRACETAM [Suspect]
     Dosage: UNK
  23. NPH INSULIN [Suspect]
     Dosage: UNK
  24. INSULIN ASPART [Suspect]
  25. GLIPIZIDE [Concomitant]
     Dosage: 5 MG, QD
  26. LEVETIRACETAM [Concomitant]
     Dosage: 500 MG, BID

REACTIONS (3)
  - DECREASED APPETITE [None]
  - DEHYDRATION [None]
  - NAUSEA [None]
